FAERS Safety Report 4707160-3 (Version None)
Quarter: 2005Q3

REPORT INFORMATION
  Report Type: 
  Country: None (occurrence: None)
  Receive Date: 20050706
  Receipt Date: 20050624
  Transmission Date: 20060218
  Serious: Yes (Death, Life-Threatening, Hospitalization, Other)
  Sender: FDA-Public Use
  Company Number: GB-JNJFOC-20050606541

PATIENT
  Sex: Female
  Weight: 88 kg

DRUGS (9)
  1. REMICADE [Suspect]
     Indication: RHEUMATOID ARTHRITIS
     Route: 042
  2. CALCICHEW [Concomitant]
     Route: 065
  3. BISOPROLOL [Concomitant]
     Route: 065
  4. ASPIRIN [Concomitant]
     Route: 065
  5. CANDESARTAN [Concomitant]
     Route: 065
  6. SANOMIGRAN [Concomitant]
     Route: 065
  7. PREDNISOLONE [Concomitant]
     Route: 065
  8. RISEDRONATE [Concomitant]
     Route: 065
  9. CALCICHEW [Concomitant]
     Route: 065

REACTIONS (3)
  - CARDIAC ARREST [None]
  - LEFT VENTRICULAR FAILURE [None]
  - PULMONARY FIBROSIS [None]
